FAERS Safety Report 11170148 (Version 6)
Quarter: 2015Q3

REPORT INFORMATION
  Report Type: Spontaneous
  Country: ES (occurrence: ES)
  Receive Date: 20150608
  Receipt Date: 20150826
  Transmission Date: 20151125
  Serious: Yes (Other)
  Sender: FDA-Public Use
  Company Number: ES-AMGEN-ESPSP2015045152

PATIENT
  Age: 47 Year
  Sex: Female

DRUGS (18)
  1. ENBREL [Suspect]
     Active Substance: ETANERCEPT
     Dosage: 50 MG, WEEKLY (ON SATURDAYS)
     Route: 058
     Dates: start: 20150620
  2. LORAZEPAM. [Concomitant]
     Active Substance: LORAZEPAM
     Dosage: 1 G, 1X/DAY (AT NIGHTS)
  3. ADIRO [Concomitant]
     Active Substance: ASPIRIN
     Indication: ARRHYTHMIA
     Dosage: UNK
  4. PARACETAMOL [Concomitant]
     Active Substance: ACETAMINOPHEN
     Indication: PAIN
     Dosage: 1 G, 2X/DAY
  5. PARACETAMOL [Concomitant]
     Active Substance: ACETAMINOPHEN
     Dosage: 1 G, 2X/DAY
  6. HIDROFEROL [Concomitant]
     Active Substance: CALCIFEDIOL
     Indication: BONE DISORDER
     Dosage: 1 DF, MONTHLY
  7. PREDNISONE. [Concomitant]
     Active Substance: PREDNISONE
     Dosage: 5 MG, 1X/DAY
  8. DOLPAR [Concomitant]
     Active Substance: TRAMADOL HYDROCHLORIDE
     Indication: PAIN
     Dosage: 100 MG, 3X/DAY (ALTERNATED WITH NAPROXEN)
  9. LORAZEPAM. [Concomitant]
     Active Substance: LORAZEPAM
     Indication: SLEEP DISORDER THERAPY
     Dosage: UNK
  10. AMLODIPINE [Concomitant]
     Active Substance: AMLODIPINE BESYLATE
     Indication: HYPERTENSION
     Dosage: 5 MG, 1X/DAY (AT NIGHTS)
  11. NAPROXEN. [Concomitant]
     Active Substance: NAPROXEN
     Indication: PAIN
     Dosage: 550 MG, 3X/DAY (ALTERNATING WITH DOLPAR)
  12. ACEDIUR                            /00729601/ [Concomitant]
     Indication: HYPERTENSION
     Dosage: 20 MG, 1X/DAY (IN THE MORNINGS)
  13. OMEPRAZOLE. [Concomitant]
     Active Substance: OMEPRAZOLE
     Indication: PROPHYLAXIS
     Dosage: 40 MG, 1X/DAY
  14. LORAZEPAM. [Concomitant]
     Active Substance: LORAZEPAM
     Indication: RELAXATION THERAPY
     Dosage: 1 G, 1X/DAY (AT NIGHTS)
  15. ENBREL [Suspect]
     Active Substance: ETANERCEPT
     Indication: RHEUMATOID ARTHRITIS
     Dosage: 50 MG, WEEKLY (ON SATURDAYS)
     Route: 058
     Dates: start: 20150418, end: 201506
  16. AMLODIPINE [Concomitant]
     Active Substance: AMLODIPINE BESYLATE
     Dosage: 5 MG, 1X/DAY (AT NIGHTS)
  17. CALCIUM D                          /00944201/ [Concomitant]
     Active Substance: CALCIUM CARBONATE\CHOLECALCIFEROL
     Indication: CALCIUM DEFICIENCY
     Dosage: 500 MG, QWK
  18. PREDNISONE. [Concomitant]
     Active Substance: PREDNISONE
     Indication: RHEUMATOID ARTHRITIS
     Dosage: 5 MG, 1X/DAY

REACTIONS (30)
  - Disease recurrence [Unknown]
  - Vomiting [Unknown]
  - Pruritus [Unknown]
  - Musculoskeletal pain [Not Recovered/Not Resolved]
  - Pyrexia [Unknown]
  - Hyperhidrosis [Unknown]
  - Mucosal inflammation [Unknown]
  - Dizziness [Unknown]
  - Insomnia [Unknown]
  - Condition aggravated [Unknown]
  - Arthralgia [Not Recovered/Not Resolved]
  - Arthralgia [Unknown]
  - Pain in extremity [Unknown]
  - Arrhythmia [Unknown]
  - Swelling [Unknown]
  - Rash [Unknown]
  - Pigmentation disorder [Unknown]
  - Dry mouth [Unknown]
  - Chest pain [Unknown]
  - Nausea [Unknown]
  - Feeling hot [Unknown]
  - Dyspnoea [Unknown]
  - Epistaxis [Unknown]
  - Skin exfoliation [Unknown]
  - Dyspepsia [Unknown]
  - Heart rate increased [Unknown]
  - Swelling face [Unknown]
  - Rhinalgia [Unknown]
  - Skin depigmentation [Not Recovered/Not Resolved]
  - Headache [Unknown]

NARRATIVE: CASE EVENT DATE: 2015
